FAERS Safety Report 8556341-X (Version None)
Quarter: 2012Q3

REPORT INFORMATION
  Report Type: 
  Country: None (occurrence: None)
  Receive Date: 20120801
  Receipt Date: 20120726
  Transmission Date: 20120928
  Serious: No
  Sender: FDA-Public Use
  Company Number: US-PFIZER INC-2012149427

PATIENT
  Sex: Male
  Weight: 113.38 kg

DRUGS (2)
  1. LATANOPROST [Suspect]
     Dosage: UNK
  2. LATANOPROST [Suspect]
     Indication: OPTIC NERVE DISORDER
     Dosage: UNK
     Dates: start: 20120101

REACTIONS (4)
  - PRODUCT QUALITY ISSUE [None]
  - EYE DISORDER [None]
  - VITAMIN D DECREASED [None]
  - FEELING ABNORMAL [None]
